FAERS Safety Report 9070928 (Version 5)
Quarter: 2013Q4

REPORT INFORMATION
  Report Type: Spontaneous
  Country: US (occurrence: US)
  Receive Date: 20130129
  Receipt Date: 20131114
  Transmission Date: 20140711
  Serious: Yes (Hospitalization)
  Sender: FDA-Public Use
  Company Number: US-GLAXOSMITHKLINE-A1009971A

PATIENT
  Age: 31 Year
  Sex: Female

DRUGS (2)
  1. FLOLAN [Suspect]
     Indication: PULMONARY ARTERIAL HYPERTENSION
     Dosage: 35.29NGKM CONTINUOUS
     Route: 042
     Dates: start: 20100629
  2. ADCIRCA [Concomitant]

REACTIONS (16)
  - Abortion [Unknown]
  - Uterine dilation and curettage [Unknown]
  - Exposure during pregnancy [Unknown]
  - Infusion site pruritus [Unknown]
  - Infusion site rash [Unknown]
  - Device related infection [Unknown]
  - Infusion site pain [Unknown]
  - Infusion site swelling [Unknown]
  - Infusion site erythema [Unknown]
  - Catheter site discharge [Unknown]
  - Catheter removal [Unknown]
  - Central venous catheterisation [Unknown]
  - Blister [Not Recovered/Not Resolved]
  - Pain in jaw [Not Recovered/Not Resolved]
  - Rash [Not Recovered/Not Resolved]
  - Diarrhoea [Not Recovered/Not Resolved]
